FAERS Safety Report 7668464-8 (Version None)
Quarter: 2011Q3

REPORT INFORMATION
  Report Type: 
  Country: None (occurrence: None)
  Receive Date: 20110808
  Receipt Date: 20110801
  Transmission Date: 20111222
  Serious: Yes (Disabling, Other)
  Sender: FDA-Public Use
  Company Number: US-BRACCO-003229

PATIENT
  Sex: Female

DRUGS (4)
  1. CONTRAST MEDIA [Suspect]
     Indication: NUCLEAR MAGNETIC RESONANCE IMAGING
     Dosage: ONCE
     Route: 065
     Dates: start: 20061122, end: 20061122
  2. MULTIHANCE [Suspect]
     Route: 065
     Dates: start: 20061101, end: 20061101
  3. OMNISCAN [Suspect]
     Indication: NUCLEAR MAGNETIC RESONANCE IMAGING BRAIN
     Route: 042
     Dates: start: 20050821, end: 20050821
  4. CONTRAST MEDIA [Suspect]
     Dosage: ONCE
     Dates: start: 20051109, end: 20051109

REACTIONS (1)
  - NEPHROGENIC SYSTEMIC FIBROSIS [None]
